FAERS Safety Report 8265688-6 (Version None)
Quarter: 2012Q2

REPORT INFORMATION
  Report Type: 
  Country: None (occurrence: None)
  Receive Date: 20120403
  Receipt Date: 20120326
  Transmission Date: 20120825
  Serious: Yes (Hospitalization, Other)
  Sender: FDA-Public Use
  Company Number: 131860

PATIENT
  Age: 15 Year
  Sex: Male

DRUGS (1)
  1. FOSPHENYTOIN SODIUM [Suspect]
     Indication: PARTIAL SEIZURES
     Dosage: 3750 MG (45 MG/KG) OVER 1 HOUR IV INFUSION
     Route: 042

REACTIONS (7)
  - INTENTIONAL OVERDOSE [None]
  - MEDICATION ERROR [None]
  - ATAXIA [None]
  - AGITATION [None]
  - NEUROTOXICITY [None]
  - DYSARTHRIA [None]
  - GRAND MAL CONVULSION [None]
